FAERS Safety Report 10202822 (Version 1)
Quarter: 2014Q2

REPORT INFORMATION
  Report Type: Report from Study
  Country: VE (occurrence: VE)
  Receive Date: 20140528
  Receipt Date: 20140528
  Transmission Date: 20141212
  Serious: Yes (Other)
  Sender: FDA-Public Use
  Company Number: VE-ABBVIE-14P-178-1241180-00

PATIENT
  Age: 55 Year
  Sex: Female
  Weight: 70 kg

DRUGS (2)
  1. HUMIRA [Suspect]
     Indication: PSORIASIS
     Route: 058
     Dates: start: 2013, end: 201404
  2. METHOTREXATE [Concomitant]
     Indication: PSORIASIS

REACTIONS (2)
  - Convulsion [Unknown]
  - Tuberculin test positive [Recovering/Resolving]
